FAERS Safety Report 11433043 (Version 1)
Quarter: 2015Q3

REPORT INFORMATION
  Report Type: Spontaneous
  Country: FR (occurrence: FR)
  Receive Date: 20150829
  Receipt Date: 20150829
  Transmission Date: 20151125
  Serious: Yes (Hospitalization)
  Sender: FDA-Public Use
  Company Number: FR-AUROBINDO-AUR-APL-2015-07501

PATIENT
  Age: 43 Year
  Sex: Male

DRUGS (2)
  1. FLUOXETINE ARROW [Suspect]
     Active Substance: FLUOXETINE HYDROCHLORIDE
     Indication: DEPRESSION
     Dosage: 40 MG, DAILY
     Route: 048
     Dates: start: 201412
  2. RIBAVIRINE [Concomitant]
     Active Substance: RIBAVIRIN
     Indication: PRODUCT USED FOR UNKNOWN INDICATION
     Dosage: 400 MG, UNK
     Route: 048
     Dates: start: 20141022, end: 201503

REACTIONS (4)
  - Psoriasis [Recovering/Resolving]
  - Rash erythematous [Recovering/Resolving]
  - Erysipelas [Recovering/Resolving]
  - Pruritus [Recovering/Resolving]

NARRATIVE: CASE EVENT DATE: 201504
